FAERS Safety Report 25350355 (Version 2)
Quarter: 2025Q2

REPORT INFORMATION
  Report Type: Spontaneous
  Country: DE (occurrence: DE)
  Receive Date: 20250523
  Receipt Date: 20250530
  Transmission Date: 20250716
  Serious: Yes (Hospitalization, Other)
  Sender: RANBAXY
  Company Number: DE-CADRBFARM-2025334496

PATIENT
  Age: 8 Year
  Sex: Female
  Weight: 24 kg

DRUGS (19)
  1. MORPHINE [Suspect]
     Active Substance: MORPHINE
     Indication: Cough
     Route: 040
     Dates: start: 20190508, end: 20190508
  2. MORPHINE [Suspect]
     Active Substance: MORPHINE
     Indication: Dyspnoea
  3. MORPHINE [Suspect]
     Active Substance: MORPHINE
     Indication: Asthma
  4. MORPHINE [Suspect]
     Active Substance: MORPHINE
     Indication: Hyperventilation
  5. MORPHINE [Suspect]
     Active Substance: MORPHINE
     Indication: Tetany
  6. MORPHINE [Suspect]
     Active Substance: MORPHINE
     Indication: Asthma
  7. MIDAZOLAM [Suspect]
     Active Substance: MIDAZOLAM
     Indication: Cough
     Route: 040
     Dates: start: 20190508, end: 20190508
  8. MIDAZOLAM [Suspect]
     Active Substance: MIDAZOLAM
     Indication: Dyspnoea
  9. MIDAZOLAM [Suspect]
     Active Substance: MIDAZOLAM
     Indication: Asthma
  10. MIDAZOLAM [Suspect]
     Active Substance: MIDAZOLAM
     Indication: Hyperventilation
  11. MIDAZOLAM [Suspect]
     Active Substance: MIDAZOLAM
     Indication: Tetany
  12. MIDAZOLAM [Suspect]
     Active Substance: MIDAZOLAM
     Indication: Asthma
  13. ATROVENT [Concomitant]
     Active Substance: IPRATROPIUM BROMIDE
     Indication: Product used for unknown indication
     Route: 055
     Dates: start: 20190508, end: 20190508
  14. OXYGEN [Concomitant]
     Active Substance: OXYGEN
     Indication: Product used for unknown indication
     Route: 055
     Dates: start: 20190508, end: 20190508
  15. SULTANOL [Concomitant]
     Active Substance: ALBUTEROL SULFATE
     Indication: Product used for unknown indication
     Route: 055
     Dates: start: 20190508, end: 20190508
  16. SUPRARENIN [Concomitant]
     Active Substance: EPINEPHRINE
     Indication: Product used for unknown indication
     Route: 055
     Dates: start: 20190508, end: 20190508
  17. ALBUTEROL [Concomitant]
     Active Substance: ALBUTEROL
     Indication: Product used for unknown indication
     Route: 065
  18. CETIRIZINE HYDROCHLORIDE [Concomitant]
     Active Substance: CETIRIZINE HYDROCHLORIDE
     Indication: Product used for unknown indication
     Route: 065
  19. PREDNISOLONE [Concomitant]
     Active Substance: PREDNISOLONE
     Indication: Product used for unknown indication
     Route: 048

REACTIONS (15)
  - Dysarthria [Recovered/Resolved with Sequelae]
  - Loss of consciousness [Recovered/Resolved with Sequelae]
  - Muscular weakness [Recovered/Resolved with Sequelae]
  - Disturbance in attention [Recovered/Resolved with Sequelae]
  - Somnolence [Recovered/Resolved with Sequelae]
  - Movement disorder [Recovered/Resolved with Sequelae]
  - Areflexia [Recovered/Resolved with Sequelae]
  - Speech disorder [Recovered/Resolved with Sequelae]
  - Paralysis [Recovered/Resolved with Sequelae]
  - Confusional state [Recovered/Resolved with Sequelae]
  - Stupor [Recovered/Resolved with Sequelae]
  - Illusion [Recovered/Resolved with Sequelae]
  - Disturbance in attention [Recovered/Resolved with Sequelae]
  - Post-traumatic stress disorder [Unknown]
  - Suicidal ideation [Unknown]

NARRATIVE: CASE EVENT DATE: 20190508
